APPROVED DRUG PRODUCT: CLEMASTINE FUMARATE
Active Ingredient: CLEMASTINE FUMARATE
Strength: 2.68MG
Dosage Form/Route: TABLET;ORAL
Application: A073459 | Product #001
Applicant: OMNIVIUM PHARMACEUTICALS LLC
Approved: Oct 31, 1993 | RLD: No | RS: No | Type: DISCN